FAERS Safety Report 8876587 (Version 1)
Quarter: 2012Q4

REPORT INFORMATION
  Report Type: 
  Country: US (occurrence: US)
  Receive Date: 20121023
  Receipt Date: 20121023
  Transmission Date: 20130627
  Serious: No
  Sender: FDA-Public Use
  Company Number: US-ASTELLAS-2012US008071

PATIENT
  Sex: Female
  Weight: 118 kg

DRUGS (5)
  1. PROGRAF [Suspect]
     Indication: RENAL TRANSPLANT
     Dosage: 5 mg, UID/QD
     Route: 048
     Dates: start: 20090507
  2. LABETALOL [Concomitant]
     Indication: BLOOD PRESSURE
     Dosage: 200 mg, UID/QD
     Route: 048
  3. DIOVAN [Concomitant]
     Indication: BLOOD PRESSURE
     Dosage: 320 mg, UID/QD
     Route: 048
  4. TRAZODONE [Concomitant]
     Indication: SLEEP DISORDER
     Dosage: 100 mg, UID/QD
     Route: 048
  5. FAMOTIDINE [Concomitant]
     Indication: PEPTIC ULCER
     Dosage: 20 mg, UID/QD
     Route: 048

REACTIONS (1)
  - Gout [Unknown]
